FAERS Safety Report 10979487 (Version 1)
Quarter: 2015Q2

REPORT INFORMATION
  Report Type: Spontaneous
  Country: AU (occurrence: AU)
  Receive Date: 20150402
  Receipt Date: 20150402
  Transmission Date: 20150821
  Serious: Yes (Other)
  Sender: FDA-Public Use
  Company Number: AU-BAYER-2015-075332

PATIENT

DRUGS (3)
  1. ASPRO [Suspect]
     Active Substance: ASPIRIN\SODIUM BICARBONATE
  2. AZATHIOPRINE. [Concomitant]
     Active Substance: AZATHIOPRINE
  3. IRBESARTAN. [Suspect]
     Active Substance: IRBESARTAN

REACTIONS (1)
  - Drug-induced liver injury [None]
